FAERS Safety Report 4684435-8 (Version None)
Quarter: 2005Q2

REPORT INFORMATION
  Report Type: 
  Country: None (occurrence: None)
  Receive Date: 20050531
  Receipt Date: 20041015
  Transmission Date: 20051028
  Serious: Yes (Other)
  Sender: FDA-Public Use
  Company Number: USA040670571

PATIENT
  Age: 44 Year
  Sex: Male
  Weight: 127 kg

DRUGS (17)
  1. PROZAC [Suspect]
     Indication: MAJOR DEPRESSION
     Dates: start: 19940101, end: 19940101
  2. ZYPREXA [Suspect]
     Indication: PSYCHOTIC DISORDER
     Dosage: 10 MG/3 DAY
     Dates: start: 19960101
  3. SYMBYAX [Suspect]
     Indication: BIPOLAR DISORDER
     Dates: start: 20040524
  4. STRATTERA [Suspect]
     Indication: ATTENTION DEFICIT/HYPERACTIVITY DISORDER
     Dosage: 40 MG/2 DAY
     Dates: start: 20040716
  5. GEODON [Concomitant]
  6. DIOVAN [Concomitant]
  7. DILTIAZEM [Concomitant]
  8. CLONIDINE [Concomitant]
  9. OXYBUTYNIN [Concomitant]
  10. VITAMIN E [Concomitant]
  11. PRAVACHOL [Concomitant]
  12. METFORMIN [Concomitant]
  13. ACTOS [Concomitant]
  14. ASPIRIN [Concomitant]
  15. SEROQUEL [Concomitant]
  16. PAXIL [Concomitant]
  17. FLUVOXAMINE MALEATE [Concomitant]

REACTIONS (19)
  - AGGRESSION [None]
  - ANXIETY [None]
  - ASTHENIA [None]
  - DIABETES MELLITUS NON-INSULIN-DEPENDENT [None]
  - DRUG INEFFECTIVE [None]
  - DRUG INTERACTION [None]
  - FEAR [None]
  - HYPERSOMNIA [None]
  - INCREASED APPETITE [None]
  - INITIAL INSOMNIA [None]
  - MAJOR DEPRESSION [None]
  - MOOD SWINGS [None]
  - NEGATIVISM [None]
  - OEDEMA [None]
  - PRESCRIBED OVERDOSE [None]
  - SUICIDAL IDEATION [None]
  - TINNITUS [None]
  - TREMOR [None]
  - WEIGHT INCREASED [None]
